FAERS Safety Report 13575088 (Version 2)
Quarter: 2017Q2

REPORT INFORMATION
  Report Type: Spontaneous
  Country: DE (occurrence: DE)
  Receive Date: 20170523
  Receipt Date: 20170619
  Transmission Date: 20170830
  Serious: Yes (Other)
  Sender: FDA-Public Use
  Company Number: DE-ROCHE-1938234

PATIENT
  Sex: Female

DRUGS (2)
  1. MABTHERA [Suspect]
     Active Substance: RITUXIMAB
     Indication: POLYMYOSITIS
  2. MABTHERA [Suspect]
     Active Substance: RITUXIMAB
     Indication: COLLAGEN DISORDER
     Route: 042
     Dates: start: 2015

REACTIONS (3)
  - Off label use [Unknown]
  - Systemic scleroderma [Unknown]
  - Osteoporosis [Unknown]
